FAERS Safety Report 10991660 (Version 2)
Quarter: 2015Q2

REPORT INFORMATION
  Report Type: Report from Study
  Country: BE (occurrence: BE)
  Receive Date: 20150406
  Receipt Date: 20150417
  Transmission Date: 20150821
  Serious: Yes (Hospitalization)
  Sender: FDA-Public Use
  Company Number: BE-ABBVIE-15P-013-1367982-00

PATIENT
  Age: 57 Year
  Sex: Male
  Weight: 82 kg

DRUGS (28)
  1. HUMIRA [Suspect]
     Active Substance: ADALIMUMAB
     Indication: UVEITIS
     Route: 058
     Dates: start: 20110318
  2. DEXAMETHASON [Concomitant]
     Active Substance: DEXAMETHASONE
     Route: 061
     Dates: start: 20141005, end: 20141008
  3. DEXAMETHASON [Concomitant]
     Active Substance: DEXAMETHASONE
     Route: 061
     Dates: start: 20141009, end: 20141203
  4. PERINDOPRIL ARGININE AMLODIPINE BIOPHARMA [Concomitant]
     Indication: HYPERTENSION
     Route: 048
     Dates: start: 20130201
  5. MENSION LOTION [Concomitant]
     Indication: ALOPECIA
     Route: 061
     Dates: start: 201412
  6. DEXAMETHASON [Concomitant]
     Active Substance: DEXAMETHASONE
     Route: 061
     Dates: start: 20110813, end: 20110916
  7. DEXAMETHASON [Concomitant]
     Active Substance: DEXAMETHASONE
     Route: 061
     Dates: start: 20110917, end: 20120112
  8. DEXAMETHASON [Concomitant]
     Active Substance: DEXAMETHASONE
     Route: 061
  9. DEXAMETHASON [Concomitant]
     Active Substance: DEXAMETHASONE
     Route: 061
     Dates: start: 20120218, end: 201203
  10. DEXAMETHASON [Concomitant]
     Active Substance: DEXAMETHASONE
     Route: 061
     Dates: start: 20120927, end: 20121123
  11. ARGININ [Concomitant]
     Route: 048
     Dates: start: 201402
  12. DEXAMETHASON [Concomitant]
     Active Substance: DEXAMETHASONE
     Route: 061
     Dates: start: 201311, end: 201403
  13. MAGNESIUM [Concomitant]
     Active Substance: MAGNESIUM
     Indication: PROPHYLAXIS
     Route: 048
     Dates: start: 201409
  14. DEXAMETHASON [Concomitant]
     Active Substance: DEXAMETHASONE
     Route: 061
     Dates: start: 201203, end: 201204
  15. DEXAMETHASON [Concomitant]
     Active Substance: DEXAMETHASONE
     Indication: UVEITIS
     Route: 061
     Dates: start: 20110715, end: 20110720
  16. DEXAMETHASON [Concomitant]
     Active Substance: DEXAMETHASONE
     Route: 061
     Dates: start: 201304, end: 20130503
  17. DEXAMETHASON [Concomitant]
     Active Substance: DEXAMETHASONE
     Route: 061
     Dates: start: 20120703, end: 20120716
  18. DEXAMETHASON [Concomitant]
     Active Substance: DEXAMETHASONE
     Route: 061
     Dates: start: 201403, end: 20141004
  19. MAGNESIUM [Concomitant]
     Active Substance: MAGNESIUM
     Indication: MUSCULOSKELETAL STIFFNESS
     Route: 048
     Dates: start: 201309, end: 201406
  20. DEXAMETHASON [Concomitant]
     Active Substance: DEXAMETHASONE
     Route: 061
     Dates: start: 20110812, end: 20110831
  21. DEXAMETHASON [Concomitant]
     Active Substance: DEXAMETHASONE
     Route: 061
     Dates: start: 20150108, end: 20150228
  22. COQ10 [Concomitant]
     Active Substance: UBIDECARENONE
     Indication: NUTRITIONAL SUPPLEMENTATION
     Route: 048
     Dates: start: 201402
  23. DEXAMETHASON [Concomitant]
     Active Substance: DEXAMETHASONE
     Route: 061
     Dates: start: 20130301, end: 201304
  24. DEXAMETHASON [Concomitant]
     Active Substance: DEXAMETHASONE
     Route: 061
     Dates: start: 20141204, end: 20150107
  25. DEXAMETHASON [Concomitant]
     Active Substance: DEXAMETHASONE
     Route: 061
     Dates: start: 20150301
  26. HYALURONIC ACID [Concomitant]
     Active Substance: HYALURONIC ACID
     Indication: ASTHENOPIA
     Route: 061
     Dates: start: 20131009
  27. OMEGA 3-6-9 [Concomitant]
     Indication: NUTRITIONAL SUPPLEMENTATION
     Route: 048
     Dates: start: 201402
  28. ARGININ [Concomitant]
     Indication: NUTRITIONAL SUPPLEMENTATION
     Route: 048
     Dates: start: 201308, end: 20130924

REACTIONS (1)
  - Renal colic [Recovered/Resolved]

NARRATIVE: CASE EVENT DATE: 20150309
